FAERS Safety Report 24609564 (Version 1)
Quarter: 2024Q4

REPORT INFORMATION
  Report Type: Spontaneous
  Country: US (occurrence: US)
  Receive Date: 20241112
  Receipt Date: 20241112
  Transmission Date: 20250115
  Serious: No
  Sender: TEVA
  Company Number: US-TEVA-VS-3258526

PATIENT

DRUGS (1)
  1. DILTIAZEM [Suspect]
     Active Substance: DILTIAZEM
     Indication: Product used for unknown indication
     Dosage: I TAKE ONE PER DAY WITH AN EXTRA ONE DAILY IF NEEDED.
     Route: 065

REACTIONS (3)
  - Heart rate increased [Unknown]
  - Hypertension [Unknown]
  - Drug intolerance [Unknown]
